FAERS Safety Report 20299317 (Version 1)
Quarter: 2022Q1

REPORT INFORMATION
  Report Type: Report from Study
  Country: EG (occurrence: EG)
  Receive Date: 20220105
  Receipt Date: 20220105
  Transmission Date: 20220423
  Serious: Yes (Other)
  Sender: FDA-Public Use
  Company Number: EG-NOVARTISPH-NVSC2021EG299204

PATIENT
  Age: 64 Year
  Sex: Female

DRUGS (6)
  1. ENTRESTO [Suspect]
     Active Substance: SACUBITRIL\VALSARTAN
     Indication: Cardiac failure
     Dosage: 50 MG, QD (ONE TABLET) (CONTINUED ON THIS REGIMEN FOR 6 OR NINE MONTHS)
     Route: 048
  2. ENTRESTO [Suspect]
     Active Substance: SACUBITRIL\VALSARTAN
     Indication: Atrial fibrillation
     Dosage: 100 MG, QD (ONE TABLET)
     Route: 048
     Dates: start: 2020
  3. APIDRA [Concomitant]
     Active Substance: INSULIN GLULISINE
     Indication: Diabetes mellitus
     Dosage: UNK, TID
     Route: 058
     Dates: start: 2015
  4. LANTUS [Concomitant]
     Active Substance: INSULIN GLARGINE
     Indication: Diabetes mellitus
     Dosage: 35 IU, QD
     Route: 058
     Dates: start: 2015
  5. EXAMIDE [Concomitant]
     Indication: Hypertension
     Dosage: 1 DOSAGE FORM, QD (ON EMPTY STOMACH)
     Route: 048
     Dates: start: 2015
  6. BON ONE [Concomitant]
     Indication: Mineral supplementation
     Dosage: 1 UG, QD (ONE TABLET)
     Route: 048

REACTIONS (11)
  - Pain in extremity [Recovering/Resolving]
  - Arthralgia [Recovering/Resolving]
  - Hypokinesia [Recovering/Resolving]
  - Gait disturbance [Recovering/Resolving]
  - Renal impairment [Unknown]
  - Atrial fibrillation [Recovering/Resolving]
  - Heart rate irregular [Recovering/Resolving]
  - Prescribed underdose [Recovering/Resolving]
  - Haemoglobin decreased [Unknown]
  - Off label use [Unknown]
  - Product use in unapproved indication [Unknown]

NARRATIVE: CASE EVENT DATE: 20200301
